FAERS Safety Report 19303466 (Version 1)
Quarter: 2021Q2

REPORT INFORMATION
  Report Type: Report from Study
  Country: US (occurrence: US)
  Receive Date: 20210525
  Receipt Date: 20210525
  Transmission Date: 20210717
  Serious: Yes (Other)
  Sender: FDA-Public Use
  Company Number: US-JNJFOC-20210528976

PATIENT
  Sex: Male
  Weight: 63.56 kg

DRUGS (5)
  1. SPRAVATO [Suspect]
     Active Substance: ESKETAMINE
     Indication: DEPRESSION
     Dosage: 56 MG, TOTAL 1 DOSE
     Dates: start: 20210505, end: 20210505
  2. SPRAVATO [Suspect]
     Active Substance: ESKETAMINE
     Dosage: 84 MG, TOTAL 3 DOSES
     Dates: start: 20210510, end: 20210517
  3. DULOXETINE. [Concomitant]
     Active Substance: DULOXETINE
  4. TYROSINE [Concomitant]
     Active Substance: TYROSINE
  5. ABILIFY [Concomitant]
     Active Substance: ARIPIPRAZOLE

REACTIONS (2)
  - Suicidal ideation [Unknown]
  - Drug ineffective [Unknown]
